FAERS Safety Report 7595864-7 (Version None)
Quarter: 2011Q3

REPORT INFORMATION
  Report Type: 
  Country: None (occurrence: None)
  Receive Date: 20110707
  Receipt Date: 20110629
  Transmission Date: 20111222
  Serious: Yes (Hospitalization, Other)
  Sender: FDA-Public Use
  Company Number: JP-SANOFI-AVENTIS-2011SA023322

PATIENT
  Age: 81 Year
  Sex: Male
  Weight: 49.5 kg

DRUGS (10)
  1. TAMSULOSIN HYDROCHLORIDE [Concomitant]
     Route: 048
     Dates: start: 20110302
  2. FERROUS CITRATE [Concomitant]
     Route: 048
     Dates: start: 20101015
  3. LANSOPRAZOLE [Concomitant]
     Route: 048
     Dates: start: 20110302
  4. AMARYL [Suspect]
     Route: 065
  5. GLYCORAN [Concomitant]
     Route: 065
  6. DIAZOXIDE [Concomitant]
     Indication: TYPE 2 DIABETES MELLITUS
     Route: 048
     Dates: start: 20080723
  7. METHY F [Concomitant]
     Route: 048
     Dates: start: 20081128
  8. NIPOLAZIN [Concomitant]
     Route: 048
     Dates: start: 20080911
  9. MUCOSOLVAN [Concomitant]
     Indication: EMPHYSEMA
     Route: 048
     Dates: start: 20080613
  10. PIOGLITAZONE HCL [Concomitant]
     Route: 065

REACTIONS (3)
  - MEDICATION ERROR [None]
  - HYPOGLYCAEMIC UNCONSCIOUSNESS [None]
  - CARDIO-RESPIRATORY ARREST [None]
